FAERS Safety Report 5442768-1 (Version None)
Quarter: 2007Q3

REPORT INFORMATION
  Report Type: 
  Country: None (occurrence: None)
  Receive Date: 20070904
  Receipt Date: 20070816
  Transmission Date: 20080115
  Serious: No
  Sender: FDA-Public Use
  Company Number: US-BOEHRINGER INGELHEIM PHARMACEUTICALS, INC.-2007-BP-19372BP

PATIENT
  Age: 38 Year
  Sex: Male

DRUGS (2)
  1. ZANTAC 150 [Suspect]
     Indication: DYSPEPSIA
     Route: 048
     Dates: start: 20070601
  2. ALLERFIN [Concomitant]
     Indication: HYPERSENSITIVITY

REACTIONS (3)
  - MUSCLE SPASMS [None]
  - MUSCULOSKELETAL PAIN [None]
  - NASAL CONGESTION [None]
